FAERS Safety Report 5499455-3 (Version None)
Quarter: 2007Q4

REPORT INFORMATION
  Report Type: 
  Country: None (occurrence: None)
  Receive Date: 20071026
  Receipt Date: 20071024
  Transmission Date: 20080405
  Serious: Yes (Other)
  Sender: FDA-Public Use
  Company Number: HU-BRISTOL-MYERS SQUIBB COMPANY-13926332

PATIENT
  Age: 79 Year
  Sex: Female
  Weight: 80 kg

DRUGS (8)
  1. APROVEL TABS 150 MG [Suspect]
     Indication: HYPERTENSION
     Route: 048
     Dates: start: 20070903, end: 20070915
  2. LANSOPRAZOLE [Concomitant]
     Indication: DYSPEPSIA
     Dosage: CAPSULE FORM.
     Route: 048
  3. PENTOXIFYLLINE [Concomitant]
     Indication: ARTERIOSCLEROSIS
     Dosage: TABLET FORM.
     Route: 048
  4. NICERGOLINE [Concomitant]
     Indication: VERTIGO
     Dosage: TABLET FORM.
     Route: 048
  5. NORVASC [Concomitant]
     Indication: HYPERTENSION
     Dosage: TABLET FORM.
     Route: 048
  6. LAMICTAL [Concomitant]
     Indication: EPILEPSY
     Dosage: LAMICTAL 100 MG TABLET.
     Route: 048
  7. CARBAMAZEPINE [Concomitant]
     Indication: EPILEPSY
     Dosage: TABLET FORM.
     Route: 048
  8. NITROGLYCERIN [Concomitant]
     Indication: ANGINA PECTORIS
     Dosage: PATCH 1 DAILY.
     Route: 062

REACTIONS (1)
  - BLINDNESS TRANSIENT [None]
